FAERS Safety Report 7874494-3 (Version None)
Quarter: 2011Q4

REPORT INFORMATION
  Report Type: 
  Country: None (occurrence: None)
  Receive Date: 20111030
  Receipt Date: 20110520
  Transmission Date: 20120403
  Serious: No
  Sender: FDA-Public Use
  Company Number: US-AMGEN-USASP2011026354

PATIENT
  Sex: Male

DRUGS (2)
  1. ENBREL [Suspect]
     Indication: RHEUMATOID ARTHRITIS
     Dosage: 50 MG, QWK
     Dates: start: 20030101
  2. ENBREL [Suspect]
     Indication: ANKYLOSING SPONDYLITIS

REACTIONS (11)
  - HERPES ZOSTER [None]
  - SKIN EXFOLIATION [None]
  - NAUSEA [None]
  - WEIGHT INCREASED [None]
  - ABDOMINAL PAIN [None]
  - EXCORIATION [None]
  - INJECTION SITE PAIN [None]
  - DYSPNOEA [None]
  - HYPERTENSION [None]
  - DRY MOUTH [None]
  - BLISTER [None]
